FAERS Safety Report 6142993-0 (Version None)
Quarter: 2009Q2

REPORT INFORMATION
  Report Type: 
  Country: None (occurrence: None)
  Receive Date: 20090403
  Receipt Date: 20090330
  Transmission Date: 20091009
  Serious: Yes (Death)
  Sender: FDA-Public Use
  Company Number: IE-ROCHE-624618

PATIENT
  Age: 89 Year
  Sex: Male

DRUGS (1)
  1. MIRCERA [Suspect]
     Dosage: FREQUENCY: FORTNIGHTLY
     Route: 058
     Dates: end: 20090301

REACTIONS (1)
  - DISEASE PROGRESSION [None]
